FAERS Safety Report 4880208-1 (Version None)
Quarter: 2006Q1

REPORT INFORMATION
  Report Type: 
  Country: None (occurrence: None)
  Receive Date: 20060111
  Receipt Date: 20051229
  Transmission Date: 20060701
  Serious: Yes (Disabling)
  Sender: FDA-Public Use
  Company Number: 2005090503

PATIENT
  Age: 53 Year
  Sex: Female

DRUGS (5)
  1. GEODON [Suspect]
     Indication: MAJOR DEPRESSION
     Dosage: 160 MG (80 MG, 2 IN 1 D), ORAL
     Route: 048
     Dates: start: 20041028, end: 20050625
  2. DETROL LA [Suspect]
     Indication: URINARY INCONTINENCE
     Dosage: (2 MG), ORAL
     Route: 048
     Dates: start: 20050529, end: 20050101
  3. DIPHENHYDRAMINE HCL [Suspect]
     Indication: TREMOR
     Dates: end: 20050101
  4. REMERON [Concomitant]
  5. PAXIL [Concomitant]

REACTIONS (4)
  - DRUG INEFFECTIVE [None]
  - SOMNOLENCE [None]
  - TREMOR [None]
  - URINARY INCONTINENCE [None]
